FAERS Safety Report 5235571-9 (Version None)
Quarter: 2007Q1

REPORT INFORMATION
  Report Type: 
  Country: None (occurrence: None)
  Receive Date: 20070208
  Receipt Date: 20070208
  Transmission Date: 20070707
  Serious: Yes (Other)
  Sender: FDA-Public Use
  Company Number: None

PATIENT
  Age: 66 Year
  Sex: Female

DRUGS (1)
  1. FORTICAL [Suspect]
     Indication: OSTEOPOROSIS
     Dosage: ONE SPRAY DAILY NASAL
     Route: 045
     Dates: start: 20070104, end: 20070131

REACTIONS (5)
  - BACK PAIN [None]
  - MUSCULOSKELETAL DISCOMFORT [None]
  - NASAL DISCOMFORT [None]
  - ONYCHOCLASIS [None]
  - PHARMACEUTICAL PRODUCT COMPLAINT [None]
